FAERS Safety Report 11793732 (Version 1)
Quarter: 2015Q4

REPORT INFORMATION
  Report Type: Report from Study
  Country: BR (occurrence: BR)
  Receive Date: 20151202
  Receipt Date: 20151202
  Transmission Date: 20160305
  Serious: Yes (Death, Hospitalization, Other)
  Sender: FDA-Public Use
  Company Number: BR-DEP_13137_2015

PATIENT
  Sex: Female

DRUGS (22)
  1. NICOTINELL [Suspect]
     Active Substance: NICOTINE
     Dosage: UNK
  2. DIOVAN [Suspect]
     Active Substance: VALSARTAN
     Indication: CARDIAC DISORDER
     Dosage: UNK
  3. CALCIUM SANDOZ (NCH) (CALCIUM LACTATE GLUCONATE, CALCIUM CARBONATE) [Suspect]
     Active Substance: CALCIUM CARBONATE\CALCIUM LACTATE GLUCONATE
     Indication: PRODUCT USED FOR UNKNOWN INDICATION
     Dosage: UNK
  4. DIOVAN HCT [Suspect]
     Active Substance: HYDROCHLOROTHIAZIDE\VALSARTAN
     Dosage: VALS 160 MG, HYDR 12.5 MG, UNK
  5. DIOVAN [Suspect]
     Active Substance: VALSARTAN
     Route: 048
  6. DIOVAN AMLO FIX (VALSARTAN, AMLODIPINE) [Suspect]
     Active Substance: AMLODIPINE\VALSARTAN
     Dosage: VALS 160 MG, AMLO 10 MG, UNK
  7. DIOVAN AMLO FIX (VALSARTAN, AMLODIPINE) [Suspect]
     Active Substance: AMLODIPINE\VALSARTAN
     Dosage: VALS 80 MG, AMLO 5 MG, UNK
  8. DIOCOMB SI (VALSARTAN, SIMVASTATIN) [Suspect]
     Active Substance: SIMVASTATIN\VALSARTAN
     Dosage: VALS 160 MG, SIMV 20 MG, UNK
  9. NICOTINELL [Suspect]
     Active Substance: NICOTINE
     Indication: PRODUCT USED FOR UNKNOWN INDICATION
     Dosage: UNK
  10. DIOVAN [Suspect]
     Active Substance: VALSARTAN
     Dosage: UNK
  11. DIOVAN AMLO FIX (VALSARTAN, AMLODIPINE) [Suspect]
     Active Substance: AMLODIPINE\VALSARTAN
     Indication: PRODUCT USED FOR UNKNOWN INDICATION
     Dosage: VALS 320 MG, AMLO 5 MG, UNK
  12. DIOVAN AMLO FIX (VALSARTAN, AMLODIPINE) [Suspect]
     Active Substance: AMLODIPINE\VALSARTAN
     Dosage: VALS 160 MG, AMLO 5 MG, UNK
  13. VENORUTON (NCH) (TROXERUTIN) [Suspect]
     Active Substance: TROXERUTIN
     Indication: PRODUCT USED FOR UNKNOWN INDICATION
     Dosage: UNK
  14. DIOCOMB SI (VALSARTAN, SIMVASTATIN) [Suspect]
     Active Substance: SIMVASTATIN\VALSARTAN
     Indication: PRODUCT USED FOR UNKNOWN INDICATION
     Dosage: VALS 80 MG, SIMV 20 MG, UNK
  15. BENEFIBER (NCH) (GUAR GUM) [Suspect]
     Active Substance: GUAR GUM
     Indication: PRODUCT USED FOR UNKNOWN INDICATION
     Dosage: POWDER, UNK
  16. DIOVAN AMLO FIX (VALSARTAN, AMLODIPINE) [Suspect]
     Active Substance: AMLODIPINE\VALSARTAN
     Dosage: VALS 320 MG, AMLO 10 MG, UNK
  17. CATAFLAM [Suspect]
     Active Substance: DICLOFENAC POTASSIUM
     Indication: PRODUCT USED FOR UNKNOWN INDICATION
     Dosage: UNK
  18. ONBREZ (INDACATEROL) [Suspect]
     Active Substance: INDACATEROL
     Indication: PRODUCT USED FOR UNKNOWN INDICATION
     Dosage: UNK
  19. DIOVAN [Suspect]
     Active Substance: VALSARTAN
     Dosage: UNK
  20. PLAGREL (NGX) (CLOPIDOGREL) [Suspect]
     Active Substance: CLOPIDOGREL BISULFATE
     Indication: PRODUCT USED FOR UNKNOWN INDICATION
     Dosage: UNK
  21. DIOVAN HCT [Suspect]
     Active Substance: HYDROCHLOROTHIAZIDE\VALSARTAN
     Indication: PRODUCT USED FOR UNKNOWN INDICATION
     Dosage: VALS 80 MG, HYDR 12.5 MG, UNK
  22. DIOVAN HCT [Suspect]
     Active Substance: HYDROCHLOROTHIAZIDE\VALSARTAN
     Dosage: VALS 160 MG, HYDR 25 MG, UNK

REACTIONS (2)
  - Cardiopulmonary failure [Fatal]
  - Respiratory disorder [Unknown]
